FAERS Safety Report 6030180-6 (Version None)
Quarter: 2009Q1

REPORT INFORMATION
  Report Type: 
  Country: None (occurrence: None)
  Receive Date: 20090105
  Receipt Date: 20090105
  Transmission Date: 20090719
  Serious: No
  Sender: FDA-Public Use
  Company Number: None

PATIENT
  Age: 21 Year
  Sex: Male
  Weight: 117.9352 kg

DRUGS (1)
  1. ZOLPIDEM [Suspect]
     Indication: INSOMNIA
     Dosage: 10MG AS NEEDED PO
     Route: 048
     Dates: start: 20081201, end: 20090103

REACTIONS (4)
  - AGGRESSION [None]
  - AMNESIA [None]
  - HALLUCINATION [None]
  - SOMNAMBULISM [None]
